FAERS Safety Report 10101187 (Version 1)
Quarter: 2014Q2

REPORT INFORMATION
  Report Type: Spontaneous
  Country: US (occurrence: US)
  Receive Date: 20140424
  Receipt Date: 20140424
  Transmission Date: 20141212
  Serious: Yes (Other)
  Sender: FDA-Public Use
  Company Number: US-AMGEN-USASP2014028529

PATIENT
  Age: 56 Year
  Sex: Female

DRUGS (10)
  1. PROLIA [Suspect]
     Indication: OSTEOPOROSIS
     Dosage: UNK
     Route: 065
     Dates: start: 20121227
  2. SYNTHROID [Concomitant]
  3. CALCIUM [Concomitant]
  4. BABY ASPIRIN [Concomitant]
  5. FISH OIL [Concomitant]
     Dosage: 2000 IU, UNK
  6. VITAMIN D3 [Concomitant]
     Indication: VITAMIN D DECREASED
     Dosage: 2 PER DAY
  7. ALDACTONE                          /00006201/ [Concomitant]
     Indication: CONVULSION
  8. LAMICTAL [Concomitant]
     Indication: CONVULSION
  9. INFLUENZA VACCINE [Concomitant]
     Dosage: UNK
     Dates: start: 20131028
  10. PENICILLIN                         /00000901/ [Concomitant]
     Indication: PHARYNGITIS STREPTOCOCCAL

REACTIONS (13)
  - Suicidal ideation [Unknown]
  - Pharyngitis streptococcal [Recovered/Resolved]
  - Nephrolithiasis [Unknown]
  - Osteoarthritis [Recovering/Resolving]
  - Dyspnoea [Recovering/Resolving]
  - Paranasal sinus hypersecretion [Unknown]
  - Red blood cell sedimentation rate increased [Unknown]
  - Human anaplasmosis [Unknown]
  - Weight increased [Unknown]
  - Depressed mood [Unknown]
  - Malaise [Unknown]
  - Oedema peripheral [Unknown]
  - Rash [Recovering/Resolving]
